FAERS Safety Report 9346343 (Version 3)
Quarter: 2013Q4

REPORT INFORMATION
  Report Type: Report from Study
  Country: CA (occurrence: CA)
  Receive Date: 20130613
  Receipt Date: 20131004
  Transmission Date: 20140711
  Serious: Yes (Hospitalization)
  Sender: FDA-Public Use
  Company Number: CA-ROCHE-1234624

PATIENT
  Age: 62 Year
  Sex: Female

DRUGS (13)
  1. TRASTUZUMAB [Suspect]
     Indication: BREAST CANCER
     Dosage: LOADING DOSE
     Route: 042
     Dates: start: 20130503
  2. TRASTUZUMAB [Suspect]
     Dosage: DATE OF LAST DOSE PRIOR TO SAE: 24/MAY/2013, MAINTENANCE DOSE
     Route: 042
     Dates: start: 20130524
  3. DOCETAXEL [Suspect]
     Indication: BREAST CANCER
     Route: 065
  4. CARBOPLATIN [Suspect]
     Indication: BREAST CANCER
     Route: 065
  5. ATORVASTATIN [Concomitant]
     Route: 065
     Dates: start: 2005
  6. SYNTHROID [Concomitant]
     Route: 065
     Dates: start: 2005
  7. AMLODIPINE [Concomitant]
     Route: 065
     Dates: start: 2006
  8. RAMIPRIL [Concomitant]
     Route: 065
     Dates: start: 20130314
  9. METFORMIN [Concomitant]
     Route: 065
     Dates: start: 20130314
  10. TYLENOL [Concomitant]
     Dosage: DOSAGE:PRN
     Route: 065
     Dates: start: 1993
  11. ADVIL [Concomitant]
     Route: 065
     Dates: start: 1993
  12. PERTUZUMAB [Suspect]
     Indication: BREAST CANCER
     Dosage: DATE OF LAST DOSE PRIOR TO SAE: 24/MAY/2013, LOADING DOSE AS PER PROTOCOL
     Route: 042
     Dates: start: 20130503
  13. PERTUZUMAB [Suspect]
     Dosage: DATE OF LAST DOSE PRIOR TO SAE: 24/MAY/2013, MAINTENANCE DOSE
     Route: 042
     Dates: start: 20130524

REACTIONS (1)
  - Dehydration [Recovering/Resolving]
